FAERS Safety Report 10532692 (Version 1)
Quarter: 2014Q4

REPORT INFORMATION
  Report Type: Spontaneous
  Country: DE (occurrence: DE)
  Receive Date: 20141021
  Receipt Date: 20141021
  Transmission Date: 20150529
  Serious: Yes (Life-Threatening, Hospitalization)
  Sender: FDA-Public Use
  Company Number: DE-GILEAD-2014-0119271

PATIENT
  Age: 66 Year
  Sex: Female
  Weight: 50 kg

DRUGS (8)
  1. PROLIA [Concomitant]
     Active Substance: DENOSUMAB
     Dosage: 1 DF, 2 IN 1 YEAR
  2. DEKRISTOL [Concomitant]
     Active Substance: CHOLECALCIFEROL
     Dosage: 2000 IU, Q1WK
     Dates: start: 201401
  3. SIMVAHEXAL [Concomitant]
     Active Substance: SIMVASTATIN
     Dosage: 20 MG, QD
  4. VALSARTAN. [Concomitant]
     Active Substance: VALSARTAN
     Dosage: 40 MG, BID
  5. VITAMIN B12 NOS [Concomitant]
     Dosage: 1 DF, EVERY 2-3 WEEKS
  6. PLAVIX [Concomitant]
     Active Substance: CLOPIDOGREL BISULFATE
     Dosage: 1 DF, QD
     Route: 048
  7. RANOLAZINE [Suspect]
     Active Substance: RANOLAZINE
     Indication: ANGINA PECTORIS
     Dosage: 375 MG, QD
     Route: 048
     Dates: start: 20140505, end: 20141006
  8. ANASTROZOLE. [Concomitant]
     Active Substance: ANASTROZOLE
     Dosage: 0.5 MG, BID
     Route: 048

REACTIONS (5)
  - Urticaria [Recovering/Resolving]
  - Dyspnoea [Recovering/Resolving]
  - Hyperhidrosis [Recovering/Resolving]
  - Headache [Recovering/Resolving]
  - Cough [Recovering/Resolving]

NARRATIVE: CASE EVENT DATE: 20140912
